FAERS Safety Report 4885940-1 (Version None)
Quarter: 2006Q1

REPORT INFORMATION
  Report Type: 
  Country: None (occurrence: None)
  Receive Date: 20060117
  Receipt Date: 20060102
  Transmission Date: 20060701
  Serious: Yes (Death)
  Sender: FDA-Public Use
  Company Number: 220117

PATIENT
  Age: 57 Year
  Sex: Female
  Weight: 72 kg

DRUGS (14)
  1. MABTHERA (RITUXIMAB) CONC FOR SOLUTION FOR INFUSION [Suspect]
     Indication: DIFFUSE LARGE B-CELL LYMPHOMA
     Dosage: 615 MG, INTRAVENOUS
     Route: 042
     Dates: start: 20050413, end: 20050527
  2. MESNA [Concomitant]
  3. METOPROLOL SUCCINATE [Concomitant]
  4. CALCIUM (CALCIUM NOS) [Concomitant]
  5. ACETYLCYSTEINE [Concomitant]
  6. OXOZEPAM (OXAZEPAM) [Concomitant]
  7. TRAMADOL HCL [Concomitant]
  8. VERGENTAN (ALIZAPRIDE HYDROCHLORIDE) [Concomitant]
  9. STEM CELLS (STEM CELLS) [Concomitant]
  10. IFOSFAMIDE [Concomitant]
  11. DEXAMETHASONE [Concomitant]
  12. METHOTREXATE [Concomitant]
  13. CYTARABINE [Concomitant]
  14. VM-26 [Concomitant]

REACTIONS (4)
  - ASPERGILLOSIS [None]
  - LUNG INFILTRATION [None]
  - PANCYTOPENIA [None]
  - RESPIRATORY FAILURE [None]
